FAERS Safety Report 14468200 (Version 1)
Quarter: 2018Q1

REPORT INFORMATION
  Report Type: Report from Study
  Country: JP (occurrence: JP)
  Receive Date: 20180131
  Receipt Date: 20180131
  Transmission Date: 20180509
  Serious: Yes (Other)
  Sender: FDA-Public Use
  Company Number: JP-ACTELION-A-CH2018-166812

PATIENT
  Age: 70 Year
  Sex: Female

DRUGS (2)
  1. UPTRAVI [Suspect]
     Active Substance: SELEXIPAG
     Indication: PULMONARY ARTERIAL HYPERTENSION
     Dosage: UNK
     Route: 048
     Dates: start: 20170308
  2. UPTRAVI [Suspect]
     Active Substance: SELEXIPAG
     Dosage: 2.6 MG, QD
     Route: 048

REACTIONS (1)
  - Pulmonary congestion [Recovering/Resolving]

NARRATIVE: CASE EVENT DATE: 20171017
